FAERS Safety Report 21396833 (Version 1)
Quarter: 2022Q3

REPORT INFORMATION
  Report Type: Spontaneous
  Country: DE (occurrence: DE)
  Receive Date: 20220930
  Receipt Date: 20220930
  Transmission Date: 20221027
  Serious: Yes (Other)
  Sender: FDA-Public Use
  Company Number: DE-NOVARTISPH-NVSC2022DE220468

PATIENT
  Age: 60 Year
  Sex: Male

DRUGS (14)
  1. OXCARBAZEPINE [Suspect]
     Active Substance: OXCARBAZEPINE
     Indication: Epilepsy
     Dosage: UNK
     Route: 065
  2. OXCARBAZEPINE [Suspect]
     Active Substance: OXCARBAZEPINE
     Indication: Generalised tonic-clonic seizure
  3. PHENYTOIN [Suspect]
     Active Substance: PHENYTOIN
     Indication: Generalised tonic-clonic seizure
     Dosage: UNK
     Route: 065
  4. PHENYTOIN [Suspect]
     Active Substance: PHENYTOIN
     Indication: Epilepsy
  5. LAMOTRIGINE [Suspect]
     Active Substance: LAMOTRIGINE
     Indication: Generalised tonic-clonic seizure
     Dosage: UNK
     Route: 065
  6. LAMOTRIGINE [Suspect]
     Active Substance: LAMOTRIGINE
     Indication: Epilepsy
  7. LEVETIRACETAM [Suspect]
     Active Substance: LEVETIRACETAM
     Indication: Generalised tonic-clonic seizure
     Dosage: UNK
     Route: 065
  8. LEVETIRACETAM [Suspect]
     Active Substance: LEVETIRACETAM
     Indication: Epilepsy
  9. VALPROATE [Suspect]
     Active Substance: VALPROIC ACID
     Indication: Epilepsy
     Dosage: UNK
     Route: 065
  10. VALPROATE [Suspect]
     Active Substance: VALPROIC ACID
     Indication: Generalised tonic-clonic seizure
  11. TOPIRAMATE [Suspect]
     Active Substance: TOPIRAMATE
     Indication: Epilepsy
     Dosage: UNK
     Route: 065
  12. TOPIRAMATE [Suspect]
     Active Substance: TOPIRAMATE
     Indication: Generalised tonic-clonic seizure
  13. BRIVARACETAM [Suspect]
     Active Substance: BRIVARACETAM
     Indication: Generalised tonic-clonic seizure
     Dosage: UNK
     Route: 065
  14. BRIVARACETAM [Suspect]
     Active Substance: BRIVARACETAM
     Indication: Epilepsy

REACTIONS (2)
  - Hypertrophic cardiomyopathy [Unknown]
  - Seizure [Unknown]
